FAERS Safety Report 5622895-6 (Version None)
Quarter: 2008Q1

REPORT INFORMATION
  Report Type: 
  Country: None (occurrence: None)
  Receive Date: 20080206
  Receipt Date: 20080122
  Transmission Date: 20080703
  Serious: Yes (Other)
  Sender: FDA-Public Use
  Company Number: JPI-P-002952

PATIENT
  Age: 38 Year
  Sex: Female

DRUGS (4)
  1. LUVOX [Suspect]
     Indication: DEPRESSION
     Dosage: (50 MG, D), ORAL
     Route: 048
     Dates: start: 20080103, end: 20080111
  2. IRBESARTAN [Concomitant]
  3. SALBUTAMOL (SALBUTAMOL) [Concomitant]
  4. FLUTICASONE PROPIONATE + SALMETEROL XINAFOATE (SERETIDE /01420901/) [Concomitant]

REACTIONS (7)
  - CHEST PAIN [None]
  - CRYING [None]
  - INAPPROPRIATE AFFECT [None]
  - MIGRAINE [None]
  - PAIN IN EXTREMITY [None]
  - SPEECH DISORDER [None]
  - VISUAL DISTURBANCE [None]
